FAERS Safety Report 5398680-X (Version None)
Quarter: 2007Q3

REPORT INFORMATION
  Report Type: 
  Country: None (occurrence: None)
  Receive Date: 20070726
  Receipt Date: 20070530
  Transmission Date: 20080115
  Serious: No
  Sender: FDA-Public Use
  Company Number: US-AMGEN-KDL201863

PATIENT
  Sex: Female

DRUGS (7)
  1. PROCRIT [Suspect]
     Indication: ANAEMIA
  2. COZAAR [Suspect]
  3. BISOPROLOL FUMARATE [Suspect]
  4. LEVOTHYROXINE SODIUM [Suspect]
  5. PROTONIX [Suspect]
  6. NORVASC [Suspect]
  7. ZOLOFT [Suspect]

REACTIONS (2)
  - BLOOD PRESSURE INCREASED [None]
  - RENAL FAILURE [None]
